FAERS Safety Report 4264889-1 (Version None)
Quarter: 2004Q1

REPORT INFORMATION
  Report Type: 
  Country: None (occurrence: None)
  Receive Date: 20040105
  Receipt Date: 20031231
  Transmission Date: 20041129
  Serious: Yes (Hospitalization)
  Sender: FDA-Public Use
  Company Number: 2003192240AU

PATIENT
  Sex: Male

DRUGS (1)
  1. CABERGOLINE [Suspect]

REACTIONS (3)
  - MUSCLE RIGIDITY [None]
  - POST PROCEDURAL COMPLICATION [None]
  - REBOUND EFFECT [None]
